FAERS Safety Report 4565770-0 (Version None)
Quarter: 2005Q1

REPORT INFORMATION
  Report Type: 
  Country: None (occurrence: None)
  Receive Date: 20050126
  Receipt Date: 20050114
  Transmission Date: 20050727
  Serious: Yes (Hospitalization)
  Sender: FDA-Public Use
  Company Number: 2005-BP-00562RO

PATIENT
  Age: 48 Year
  Sex: Male

DRUGS (2)
  1. DEXAMETHASONE [Suspect]
     Indication: MULTIPLE MYELOMA
     Dosage: PO
     Route: 048
  2. THALOMID [Suspect]
     Indication: MULTIPLE MYELOMA
     Dosage: 200 MG, PO
     Route: 048
     Dates: start: 20041008

REACTIONS (6)
  - ABDOMINAL PAIN [None]
  - COLITIS ISCHAEMIC [None]
  - DYSENTERY [None]
  - ENTEROCOLITIS INFECTIOUS [None]
  - RASH [None]
  - SHIGELLA INFECTION [None]
